FAERS Safety Report 8769735 (Version 1)
Quarter: 2012Q4

REPORT INFORMATION
  Report Type: 
  Country: VN (occurrence: VN)
  Receive Date: 20120905
  Receipt Date: 20120905
  Transmission Date: 20130627
  Serious: Yes (Hospitalization)
  Sender: FDA-Public Use
  Company Number: VN-B.I. PHARMACEUTICALS,INC./RIDGEFIELD-2012-CS-01249VN

PATIENT
  Age: 59 Year
  Sex: Female
  Weight: 72 kg

DRUGS (13)
  1. PRADAXA [Suspect]
     Indication: CEREBROVASCULAR ACCIDENT PROPHYLAXIS
     Dosage: 220 mg
     Route: 048
     Dates: start: 20120702, end: 20120730
  2. PRADAXA [Suspect]
     Indication: ATRIAL FIBRILLATION
  3. IKOLOS-50 [Concomitant]
     Indication: HYPERTENSION
     Dosage: 50 mg
     Route: 048
  4. AMLIBON [Concomitant]
     Indication: HYPERTENSION
     Dosage: 5 mg
     Route: 048
  5. LIPIRUS [Concomitant]
     Indication: HYPERCHOLESTEROLAEMIA
     Dosage: 20 mg
     Route: 048
  6. ASPIRIN [Concomitant]
     Indication: THROMBOSIS PROPHYLAXIS
     Dosage: 81 mg
     Route: 048
  7. BETASERC [Concomitant]
     Indication: VERTIGO
     Dosage: 16 mg
     Route: 048
     Dates: start: 20120702
  8. PENZILO [Concomitant]
     Indication: PROPHYLAXIS AGAINST GASTROINTESTINAL ULCER
     Dosage: 40 mg
     Route: 048
     Dates: start: 20120702, end: 20120801
  9. MOTILIUM [Concomitant]
     Indication: NAUSEA
     Dosage: 10 mg
     Route: 048
     Dates: start: 20120702, end: 20120711
  10. MOTILIUM [Concomitant]
     Indication: VERTIGO
  11. MEMOLIFE [Concomitant]
     Indication: CARDIOVASCULAR EVENT PROPHYLAXIS
     Dosage: 1 capsule
     Route: 048
  12. TERPINE GONNON [Concomitant]
     Indication: COUGH
     Dosage: 2 tablets
     Route: 048
     Dates: start: 20120702, end: 20120706
  13. JOINT-CARE [Concomitant]
     Indication: OSTEOARTHRITIS
     Dosage: 1 tablet
     Route: 048

REACTIONS (1)
  - Hypertension [Recovered/Resolved]
